FAERS Safety Report 18668319 (Version 1)
Quarter: 2020Q4

REPORT INFORMATION
  Report Type: Spontaneous
  Country: US (occurrence: US)
  Receive Date: 20201224
  Receipt Date: 20201224
  Transmission Date: 20210114
  Serious: Yes (Death)
  Sender: FDA-Public Use
  Company Number: None

PATIENT
  Age: 78 Year
  Sex: Male

DRUGS (22)
  1. REPATHA [Suspect]
     Active Substance: EVOLOCUMAB
     Indication: TYPE IIA HYPERLIPIDAEMIA
     Dosage: ?          OTHER FREQUENCY:EVERY 2 WEEKS;?
     Route: 058
     Dates: start: 20180627, end: 20201218
  2. PREDNISONE. [Concomitant]
     Active Substance: PREDNISONE
  3. CALCITRIOL. [Concomitant]
     Active Substance: CALCITRIOL
  4. FISH OIL [Concomitant]
     Active Substance: FISH OIL
  5. HYDROCORTISONE. [Concomitant]
     Active Substance: HYDROCORTISONE
  6. LEVOTHYROXIN [Concomitant]
     Active Substance: LEVOTHYROXINE
  7. ASPIRIN. [Concomitant]
     Active Substance: ASPIRIN
  8. FUROSEMIDE. [Concomitant]
     Active Substance: FUROSEMIDE
  9. KETOCONAZOLE. [Concomitant]
     Active Substance: KETOCONAZOLE
  10. AMIODARONE [Concomitant]
     Active Substance: AMIODARONE
  11. TACROLIMUS. [Concomitant]
     Active Substance: TACROLIMUS
  12. CLOPIDOGREL [Concomitant]
     Active Substance: CLOPIDOGREL BISULFATE
  13. ALLOPURINOL. [Concomitant]
     Active Substance: ALLOPURINOL
  14. BUMETANIDE. [Concomitant]
     Active Substance: BUMETANIDE
  15. CARVEDILOL. [Concomitant]
     Active Substance: CARVEDILOL
  16. GLIPIZIDE. [Concomitant]
     Active Substance: GLIPIZIDE
  17. MYCOPHENOLATE [Concomitant]
     Active Substance: MYCOPHENOLIC ACID
  18. AMLODIPINE [Concomitant]
     Active Substance: AMLODIPINE BESYLATE
  19. ELIQUIS [Concomitant]
     Active Substance: APIXABAN
  20. GLUCOS/CHOND [Concomitant]
  21. METOLAZONE. [Concomitant]
     Active Substance: METOLAZONE
  22. POTASSIUM CHLORIDE. [Concomitant]
     Active Substance: POTASSIUM CHLORIDE

REACTIONS (1)
  - Death [None]

NARRATIVE: CASE EVENT DATE: 20201218
